FAERS Safety Report 22950328 (Version 2)
Quarter: 2023Q4

REPORT INFORMATION
  Report Type: Report from Study
  Country: US (occurrence: None)
  Receive Date: 20230915
  Receipt Date: 20231002
  Transmission Date: 20240109
  Serious: Yes (Hospitalization)
  Sender: FDA-Public Use
  Company Number: US-Eisai Medical Research-EC-2023-148375

PATIENT
  Age: 69 Year
  Sex: Female
  Weight: 1.408 kg

DRUGS (6)
  1. E-7386 [Suspect]
     Active Substance: E-7386
     Indication: Colon cancer
     Route: 048
     Dates: start: 20230724, end: 20230821
  2. LENVATINIB [Suspect]
     Active Substance: LENVATINIB
     Indication: Colon cancer
     Route: 048
     Dates: start: 20230724, end: 20230821
  3. AMLODIPINE [Concomitant]
     Active Substance: AMLODIPINE BESYLATE
  4. HYDROCHLOROTHIAZIDE [Concomitant]
     Active Substance: HYDROCHLOROTHIAZIDE
  5. MELOXICAM [Concomitant]
     Active Substance: MELOXICAM
  6. MIRTAZAPINE [Concomitant]
     Active Substance: MIRTAZAPINE
     Dosage: NIGHTLY

REACTIONS (1)
  - Hyponatraemia [Recovered/Resolved with Sequelae]

NARRATIVE: CASE EVENT DATE: 20230906
